FAERS Safety Report 16278524 (Version 5)
Quarter: 2019Q3

REPORT INFORMATION
  Report Type: Spontaneous
  Country: US (occurrence: US)
  Receive Date: 20190506
  Receipt Date: 20190705
  Transmission Date: 20191004
  Serious: Yes (Other)
  Sender: FDA-Public Use
  Company Number: US-PURDUE-USA-2019-0147043

PATIENT
  Age: 73 Year
  Sex: Male
  Weight: 77.98 kg

DRUGS (1)
  1. COLACE [Suspect]
     Active Substance: DOCUSATE SODIUM
     Indication: PRODUCT USED FOR UNKNOWN INDICATION
     Dosage: 3 OR MORE TABLET, DAILY
     Route: 048
     Dates: start: 2018

REACTIONS (4)
  - Hallucination [Not Recovered/Not Resolved]
  - Parkinson^s disease [Unknown]
  - Delusion [Unknown]
  - Confusional state [Unknown]

NARRATIVE: CASE EVENT DATE: 201903
